FAERS Safety Report 13680111 (Version 1)
Quarter: 2017Q2

REPORT INFORMATION
  Report Type: Spontaneous
  Country: FR (occurrence: FR)
  Receive Date: 20170622
  Receipt Date: 20170622
  Transmission Date: 20170830
  Serious: Yes (Death)
  Sender: FDA-Public Use
  Company Number: FR-ABBVIE-17P-056-2014908-00

PATIENT
  Age: 36 Year
  Sex: Female

DRUGS (2)
  1. DEPAKINE [Suspect]
     Active Substance: VALPROATE SODIUM
     Indication: EPILEPSY
     Route: 048
  2. OPTILOVA (ETHINYLESTRADIOL/LEVONORGESTREL) [Suspect]
     Active Substance: ETHINYL ESTRADIOL\LEVONORGESTREL
     Indication: CONTRACEPTION
     Route: 048
     Dates: end: 20170308

REACTIONS (2)
  - Hepatic haemorrhage [Fatal]
  - Hepatic adenoma [Fatal]

NARRATIVE: CASE EVENT DATE: 20170308
